FAERS Safety Report 6176186-8 (Version None)
Quarter: 2009Q2

REPORT INFORMATION
  Report Type: 
  Country: None (occurrence: None)
  Receive Date: 20090501
  Receipt Date: 20090421
  Transmission Date: 20091009
  Serious: Yes (Hospitalization)
  Sender: FDA-Public Use
  Company Number: US-PFIZER INC-2008037013

PATIENT
  Sex: Male
  Weight: 97.98 kg

DRUGS (8)
  1. INHALED HUMAN INSULIN [Suspect]
     Indication: TYPE 2 DIABETES MELLITUS
     Route: 055
     Dates: start: 20070625
  2. *METFORMIN HCL, ROSIGLITAZONE [Suspect]
     Indication: TYPE 2 DIABETES MELLITUS
     Dosage: 2/500 MG, 2X/DAY
     Route: 048
     Dates: start: 20071011, end: 20080423
  3. LORTAB [Concomitant]
     Indication: DIABETIC NEUROPATHY
     Dosage: FREQ:Q 4-6 HOURS; INTERVAL: AS NEEDED
     Route: 048
     Dates: start: 20050701
  4. NEURONTIN [Concomitant]
     Indication: NEUROPATHY PERIPHERAL
     Route: 048
     Dates: start: 20050701
  5. LANTUS [Concomitant]
     Indication: TYPE 2 DIABETES MELLITUS
     Route: 058
     Dates: start: 20080423
  6. LASIX [Concomitant]
     Indication: OEDEMA
     Route: 058
     Dates: start: 20080423
  7. KLOR-CON [Concomitant]
     Indication: MINERAL SUPPLEMENTATION
     Route: 058
     Dates: start: 20080423
  8. SITAGLIPTIN [Concomitant]
     Route: 048
     Dates: start: 20080423

REACTIONS (2)
  - ANAEMIA [None]
  - OEDEMA PERIPHERAL [None]
